FAERS Safety Report 4766699-5 (Version None)
Quarter: 2005Q3

REPORT INFORMATION
  Report Type: 
  Country: None (occurrence: None)
  Receive Date: 20050906
  Receipt Date: 20050819
  Transmission Date: 20060218
  Serious: Yes (Death)
  Sender: FDA-Public Use
  Company Number: WSDF 119

PATIENT
  Age: 85 Year
  Sex: Male

DRUGS (2)
  1. WINRHO SDF [Suspect]
     Indication: IDIOPATHIC THROMBOCYTOPENIC PURPURA
     Dosage: 50 UG/KG IV ONE DOSE
     Dates: start: 19990727
  2. PREDNISONE [Concomitant]

REACTIONS (13)
  - ACUTE RESPIRATORY DISTRESS SYNDROME [None]
  - ATRIOVENTRICULAR BLOCK [None]
  - BACK PAIN [None]
  - CARDIAC ARREST [None]
  - CHILLS [None]
  - DISSEMINATED INTRAVASCULAR COAGULATION [None]
  - DRUG HYPERSENSITIVITY [None]
  - JAUNDICE [None]
  - LUNG INFILTRATION [None]
  - PAIN IN EXTREMITY [None]
  - PULMONARY THROMBOSIS [None]
  - PYREXIA [None]
  - SELECTIVE IGA IMMUNODEFICIENCY [None]
